FAERS Safety Report 22148708 (Version 2)
Quarter: 2023Q2

REPORT INFORMATION
  Report Type: Report from Study
  Country: US (occurrence: US)
  Receive Date: 20230328
  Receipt Date: 20230414
  Transmission Date: 20230721
  Serious: Yes (Other)
  Sender: FDA-Public Use
  Company Number: US-TAKEDA-US201914598

PATIENT
  Age: 55 Year
  Sex: Female
  Weight: 75.737 kg

DRUGS (19)
  1. HUMAN IMMUNOGLOBULIN G\HYALURONIDASE RECOMBINANT HUMAN [Suspect]
     Active Substance: HUMAN IMMUNOGLOBULIN G\HYALURONIDASE RECOMBINANT HUMAN
     Indication: Primary immunodeficiency syndrome
     Dosage: UNK
     Route: 065
  2. CUVITRU [Suspect]
     Active Substance: HUMAN IMMUNOGLOBULIN G
     Indication: Immunodeficiency common variable
     Dosage: 16 GRAM, 1/WEEK
     Route: 058
  3. DIPHENHYDRAMINE [Concomitant]
     Active Substance: DIPHENHYDRAMINE
  4. TIZANIDINE HYDROCHLORIDE [Concomitant]
     Active Substance: TIZANIDINE HYDROCHLORIDE
  5. WELLBUTRIN [Concomitant]
     Active Substance: BUPROPION HYDROCHLORIDE
  6. QUETIAPINE FUMARATE [Concomitant]
     Active Substance: QUETIAPINE FUMARATE
  7. TIZANIDINE [Concomitant]
     Active Substance: TIZANIDINE
  8. LEVOTHYROXINE SODIUM [Concomitant]
     Active Substance: LEVOTHYROXINE SODIUM
  9. EPINEPHRINE [Concomitant]
     Active Substance: EPINEPHRINE
  10. ACETAMINOPHEN [Concomitant]
     Active Substance: ACETAMINOPHEN
  11. DIPHENHYDRAMINE HYDROCHLORIDE [Concomitant]
     Active Substance: DIPHENHYDRAMINE HYDROCHLORIDE
  12. Lmx [Concomitant]
  13. LAMOTRIGINE [Concomitant]
     Active Substance: LAMOTRIGINE
  14. KLONOPIN [Concomitant]
     Active Substance: CLONAZEPAM
  15. HIZENTRA [Concomitant]
     Active Substance: HUMAN IMMUNOGLOBULIN G
  16. LIDOCAINE [Concomitant]
     Active Substance: LIDOCAINE
  17. OXCARBAZEPINE [Concomitant]
     Active Substance: OXCARBAZEPINE
  18. BOTOX [Concomitant]
     Active Substance: ONABOTULINUMTOXINA
  19. MESTINON [Concomitant]
     Active Substance: PYRIDOSTIGMINE BROMIDE

REACTIONS (10)
  - Myasthenia gravis [Unknown]
  - Fall [Unknown]
  - Muscle injury [Unknown]
  - Bone fragmentation [Unknown]
  - Haematoma [Unknown]
  - Respiratory disorder [Unknown]
  - Weight increased [Unknown]
  - Procedural complication [Unknown]
  - Infusion site irritation [Unknown]
  - Infusion site haemorrhage [Unknown]

NARRATIVE: CASE EVENT DATE: 20190502
